FAERS Safety Report 14074970 (Version 5)
Quarter: 2018Q1

REPORT INFORMATION
  Report Type: Spontaneous
  Country: JP (occurrence: JP)
  Receive Date: 20171011
  Receipt Date: 20180315
  Transmission Date: 20180508
  Serious: Yes (Hospitalization)
  Sender: FDA-Public Use
  Company Number: JP-EISAI MEDICAL RESEARCH-EC-2017-031903

PATIENT
  Sex: Female
  Weight: 58 kg

DRUGS (1)
  1. HALAVEN [Suspect]
     Active Substance: ERIBULIN MESYLATE
     Indication: BREAST CANCER RECURRENT
     Route: 041
     Dates: start: 20170904, end: 20171016

REACTIONS (3)
  - Pyelonephritis [Recovered/Resolved]
  - Sepsis [Recovered/Resolved]
  - Febrile neutropenia [Recovered/Resolved]

NARRATIVE: CASE EVENT DATE: 20170921
